FAERS Safety Report 4571404-1 (Version None)
Quarter: 2005Q1

REPORT INFORMATION
  Report Type: 
  Country: None (occurrence: None)
  Receive Date: 20050205
  Receipt Date: 20050126
  Transmission Date: 20050727
  Serious: Yes (Hospitalization)
  Sender: FDA-Public Use
  Company Number: US-ABBOTT-05P-163-0288285-00

PATIENT
  Sex: Female
  Weight: 85.352 kg

DRUGS (6)
  1. MERIDIA [Suspect]
     Indication: WEIGHT CONTROL
     Route: 048
     Dates: start: 20041013, end: 20050120
  2. CONJUGATED ESTROGENS [Concomitant]
     Indication: HORMONE REPLACEMENT THERAPY
     Route: 048
     Dates: start: 19970101
  3. UNATHROID [Concomitant]
     Indication: HYPOTHYROIDISM
     Route: 048
     Dates: start: 19970101
  4. HYDROCHLOROTHIAZIDE [Concomitant]
     Indication: JOINT SWELLING
     Route: 048
     Dates: start: 20000101
  5. TOLTERODINE TARTRATE [Concomitant]
     Indication: URGE INCONTINENCE
     Route: 048
     Dates: start: 20040101
  6. NAPROXEN [Concomitant]
     Indication: OSTEOARTHRITIS
     Route: 048
     Dates: start: 20041001

REACTIONS (1)
  - COLITIS [None]
